FAERS Safety Report 23692072 (Version 1)
Quarter: 2024Q1

REPORT INFORMATION
  Report Type: Spontaneous
  Country: US (occurrence: None)
  Receive Date: 20240329
  Receipt Date: 20240329
  Transmission Date: 20240410
  Serious: Yes (Other)
  Sender: FDA-Public Use
  Company Number: None

PATIENT
  Age: 47 Year
  Sex: Male

DRUGS (1)
  1. RINVOQ [Suspect]
     Active Substance: UPADACITINIB
     Indication: Crohn^s disease
     Dosage: 45 MG DAILY ORAL
     Route: 048

REACTIONS (3)
  - Proctalgia [None]
  - Abdominal pain upper [None]
  - Anal spasm [None]

NARRATIVE: CASE EVENT DATE: 20240329
